FAERS Safety Report 5608825-1 (Version None)
Quarter: 2008Q1

REPORT INFORMATION
  Report Type: 
  Country: None (occurrence: None)
  Receive Date: 20080129
  Receipt Date: 20080129
  Transmission Date: 20080703
  Serious: Yes (Hospitalization)
  Sender: FDA-Public Use
  Company Number: None

PATIENT
  Sex: Female

DRUGS (1)
  1. RITALIN [Suspect]
     Indication: ATTENTION DEFICIT/HYPERACTIVITY DISORDER
     Dosage: 30MG ONCE QAM, ONCE AQNOON PO
     Route: 048
     Dates: start: 20080114

REACTIONS (5)
  - ANXIETY [None]
  - CHEST PAIN [None]
  - CHOREOATHETOSIS [None]
  - CRYING [None]
  - DYSPNOEA [None]
